FAERS Safety Report 16431735 (Version 1)
Quarter: 2019Q2

REPORT INFORMATION
  Report Type: Spontaneous
  Country: US (occurrence: US)
  Receive Date: 20190614
  Receipt Date: 20190614
  Transmission Date: 20190711
  Serious: No
  Sender: FDA-Public Use
  Company Number: US-JNJFOC-20150703030

PATIENT
  Sex: Male

DRUGS (4)
  1. RISPERDAL [Suspect]
     Active Substance: RISPERIDONE
     Indication: SCHIZOPHRENIA
     Dosage: 2 MG AND 3 MG
     Route: 048
     Dates: start: 2006
  2. RISPERDAL [Suspect]
     Active Substance: RISPERIDONE
     Indication: PSYCHOTIC DISORDER
     Route: 048
     Dates: end: 2007
  3. RISPERDAL [Suspect]
     Active Substance: RISPERIDONE
     Indication: PSYCHOTIC DISORDER
     Dosage: 2 MG AND 3 MG
     Route: 048
     Dates: start: 2006
  4. RISPERDAL [Suspect]
     Active Substance: RISPERIDONE
     Indication: SCHIZOPHRENIA
     Route: 048
     Dates: end: 2007

REACTIONS (2)
  - Gynaecomastia [Unknown]
  - Abnormal weight gain [Unknown]

NARRATIVE: CASE EVENT DATE: 2006
